FAERS Safety Report 8734470 (Version 3)
Quarter: 2014Q3

REPORT INFORMATION
  Report Type: Report from Study
  Country: JP (occurrence: JP)
  Receive Date: 20120821
  Receipt Date: 20140924
  Transmission Date: 20150326
  Serious: Yes (Life-Threatening, Hospitalization, Disabling)
  Sender: FDA-Public Use
  Company Number: JP-VIIV HEALTHCARE LIMITED-B0493139A

PATIENT
  Age: 7 Decade
  Sex: Male
  Weight: 65 kg

DRUGS (18)
  1. EPIVIR [Suspect]
     Active Substance: LAMIVUDINE
     Indication: HIV INFECTION
     Route: 048
     Dates: start: 20060905
  2. PRAVASTATIN [Concomitant]
     Active Substance: PRAVASTATIN\PRAVASTATIN SODIUM
     Indication: HYPERLIPIDAEMIA
     Dosage: 5MG PER DAY
     Route: 048
     Dates: start: 20120215
  3. CRESTOR [Concomitant]
     Active Substance: ROSUVASTATIN CALCIUM
     Indication: HYPERLIPIDAEMIA
     Dosage: 2.5MG PER DAY
     Route: 048
     Dates: start: 20130401, end: 20131224
  4. ISENTRESS [Suspect]
     Active Substance: RALTEGRAVIR POTASSIUM
     Indication: HIV INFECTION
     Route: 048
     Dates: start: 20110419, end: 20131023
  5. EPADEL [Concomitant]
     Active Substance: ICOSAPENT
     Indication: HYPERLIPIDAEMIA
     Dosage: 600MG THREE TIMES PER DAY
     Route: 048
     Dates: start: 20120215, end: 20131224
  6. EPIVIR [Suspect]
     Active Substance: LAMIVUDINE
     Indication: HIV INFECTION
     Dosage: 150MG TWICE PER DAY
     Route: 048
     Dates: start: 20060607, end: 20060620
  7. LEXIVA [Suspect]
     Active Substance: FOSAMPRENAVIR CALCIUM
     Indication: HIV INFECTION
     Dosage: 1400MG PER DAY
     Route: 048
     Dates: start: 20140219
  8. ZERIT [Concomitant]
     Active Substance: STAVUDINE
     Indication: HIV INFECTION
     Route: 048
     Dates: start: 20060607, end: 20060620
  9. LEXIVA [Suspect]
     Active Substance: FOSAMPRENAVIR CALCIUM
     Indication: HIV INFECTION
     Dosage: 1400MG TWICE PER DAY
     Route: 048
     Dates: start: 20060905, end: 20110418
  10. ADALAT [Concomitant]
     Active Substance: NIFEDIPINE
     Indication: CEREBRAL INFARCTION
     Dosage: 20MG PER DAY
     Route: 048
     Dates: start: 20110401, end: 20131224
  11. NORVIR [Concomitant]
     Active Substance: RITONAVIR
     Indication: HIV INFECTION
     Route: 048
     Dates: start: 20060607, end: 20060620
  12. KALETRA [Concomitant]
     Active Substance: LOPINAVIR\RITONAVIR
     Indication: HIV INFECTION
     Route: 048
     Dates: start: 20131024, end: 20140218
  13. BASEN [Concomitant]
     Active Substance: VOGLIBOSE
     Indication: DIABETES MELLITUS
     Dosage: .2MG TWICE PER DAY
     Route: 048
     Dates: start: 20130401, end: 20131224
  14. ZIAGEN [Suspect]
     Active Substance: ABACAVIR SULFATE
     Indication: HIV INFECTION
     Dosage: 300MG TWICE PER DAY
     Route: 048
     Dates: start: 20110419
  15. ZERIT [Concomitant]
     Active Substance: STAVUDINE
     Indication: HIV INFECTION
     Route: 048
     Dates: start: 20060905, end: 20110418
  16. REYATAZ [Concomitant]
     Active Substance: ATAZANAVIR SULFATE
     Indication: HIV INFECTION
     Route: 048
     Dates: start: 20060607, end: 20060620
  17. ZITHROMAC [Concomitant]
     Active Substance: AZITHROMYCIN DIHYDRATE
     Indication: OPPORTUNISTIC INFECTION PROPHYLAXIS
     Route: 048
     Dates: start: 20060620, end: 20070201
  18. PERSANTIN [Concomitant]
     Active Substance: DIPYRIDAMOLE
     Indication: CEREBRAL INFARCTION
     Dosage: 150MG TWICE PER DAY
     Route: 048
     Dates: start: 20110401, end: 20131224

REACTIONS (4)
  - Glucose tolerance impaired [Not Recovered/Not Resolved]
  - Cerebral haemorrhage [Recovering/Resolving]
  - Putamen haemorrhage [Recovering/Resolving]
  - Renal impairment [Not Recovered/Not Resolved]

NARRATIVE: CASE EVENT DATE: 20061110
